FAERS Safety Report 23977919 (Version 1)
Quarter: 2024Q2

REPORT INFORMATION
  Report Type: Spontaneous
  Country: GB (occurrence: GB)
  Receive Date: 20240614
  Receipt Date: 20240614
  Transmission Date: 20240716
  Serious: Yes (Other)
  Sender: FDA-Public Use
  Company Number: GB-MHRA-TPP46414770C6473870YC1717488907197

PATIENT
  Age: 76 Year
  Sex: Male
  Weight: 83 kg

DRUGS (6)
  1. DOXYCYCLINE [Suspect]
     Active Substance: DOXYCYCLINE\DOXYCYCLINE HYCLATE
     Dosage: TAKE TWO CAPSULES NOW THEN ONE CAPSULE ONCE A DAY
     Route: 065
     Dates: start: 20240530
  2. SILDENAFIL [Concomitant]
     Active Substance: SILDENAFIL
     Dosage: TIME INTERVAL: AS NECESSARY: TAKE ONE TABLET WHEN REQUIRED
     Dates: start: 20230726
  3. ATORVASTATIN [Concomitant]
     Active Substance: ATORVASTATIN
     Dosage: TAKE ONE TABLET ONCE A DAY
     Dates: start: 20230726
  4. LERCANIDIPINE HYDROCHLORIDE [Concomitant]
     Active Substance: LERCANIDIPINE HYDROCHLORIDE
     Dosage: TAKE ONE TABLET ONCE A DAY
     Dates: start: 20240508
  5. ASPIRIN [Concomitant]
     Active Substance: ASPIRIN
     Dosage: TAKE ONE DAILY
     Dates: start: 20230726
  6. CANDESARTAN [Concomitant]
     Active Substance: CANDESARTAN
     Dosage: TAKE ONE ONCE DAILY
     Dates: start: 20230726

REACTIONS (2)
  - Hypotension [Recovered/Resolved]
  - Diarrhoea [Unknown]
